FAERS Safety Report 8012492-X (Version None)
Quarter: 2011Q4

REPORT INFORMATION
  Report Type: 
  Country: None (occurrence: None)
  Receive Date: 20111229
  Receipt Date: 20111215
  Transmission Date: 20120403
  Serious: Yes (Other)
  Sender: FDA-Public Use
  Company Number: AU-ROCHE-1022455

PATIENT
  Age: 29 Year
  Sex: Male

DRUGS (6)
  1. MOXIFLOXACIN [Concomitant]
     Route: 065
  2. BASILIXIMAB [Suspect]
     Indication: ORGAN TRANSPLANT
     Route: 065
  3. METHYLPREDNISOLONE [Concomitant]
     Route: 065
  4. MYCOPHENOLATE MOFETIL [Suspect]
     Indication: ORGAN TRANSPLANT
     Route: 065
  5. COTRIM [Concomitant]
     Route: 065
  6. TACROLIMUS [Concomitant]
     Route: 065

REACTIONS (19)
  - ANASTOMOTIC HAEMORRHAGE [None]
  - DIABETES MELLITUS [None]
  - HYPEROXALURIA [None]
  - OLIGURIA [None]
  - RENAL ISCHAEMIA [None]
  - HYPOTENSION [None]
  - DIARRHOEA [None]
  - NECROSIS [None]
  - LYMPHOCYTIC INFILTRATION [None]
  - RENAL TUBULAR ATROPHY [None]
  - ANGER [None]
  - COAGULOPATHY [None]
  - RENAL TUBULAR NECROSIS [None]
  - EMOTIONAL DISTRESS [None]
  - KIDNEY FIBROSIS [None]
  - RENAL TUBULAR DISORDER [None]
  - POST PROCEDURAL COMPLICATION [None]
  - NEPHROPATHY [None]
  - RENAL FAILURE ACUTE [None]
